FAERS Safety Report 4883736-8 (Version None)
Quarter: 2006Q1

REPORT INFORMATION
  Report Type: 
  Country: None (occurrence: None)
  Receive Date: 20060118
  Receipt Date: 20051027
  Transmission Date: 20060701
  Serious: Yes (Other)
  Sender: FDA-Public Use
  Company Number: US-ROCHE-422910

PATIENT
  Age: 63 Year
  Sex: Female

DRUGS (10)
  1. VESANOID [Suspect]
     Dosage: 40 MG IN THE MORNING AND 50 MG IN THE EVENING.
     Route: 048
     Dates: start: 20051003, end: 20051215
  2. VANCOMYCIN [Concomitant]
     Indication: INFECTION
  3. CEFEPIME [Concomitant]
     Indication: INFECTION
  4. NEUPOGEN [Concomitant]
     Indication: NEUTROPENIA
     Dates: end: 20051028
  5. HEPARIN [Concomitant]
     Indication: PROPHYLAXIS
  6. IDARUBICIN HCL [Concomitant]
     Indication: ACUTE MYELOID LEUKAEMIA
     Dates: start: 20051003
  7. FLUCONAZOLE [Concomitant]
     Indication: PROPHYLAXIS
  8. ACYCLOVIR [Concomitant]
     Indication: PROPHYLAXIS
  9. CASPOFUNGIN [Concomitant]
     Indication: PROPHYLAXIS
     Dates: start: 20051028
  10. LEVOFLOXACIN [Concomitant]
     Indication: PROPHYLAXIS

REACTIONS (15)
  - BLOOD TRIGLYCERIDES INCREASED [None]
  - CENTRAL LINE INFECTION [None]
  - COMA [None]
  - DIZZINESS [None]
  - DYSPHAGIA [None]
  - HYPERBILIRUBINAEMIA [None]
  - HYPOTENSION [None]
  - INTERNATIONAL NORMALISED RATIO INCREASED [None]
  - LIVER FUNCTION TEST ABNORMAL [None]
  - MUCOSAL INFLAMMATION [None]
  - NEUTROPENIA [None]
  - PROTHROMBIN TIME PROLONGED [None]
  - PYREXIA [None]
  - SEPSIS [None]
  - VAGINAL INFECTION [None]
